FAERS Safety Report 20986272 (Version 1)
Quarter: 2022Q2

REPORT INFORMATION
  Report Type: Spontaneous
  Country: US (occurrence: None)
  Receive Date: 20220617
  Receipt Date: 20220617
  Transmission Date: 20220720
  Serious: Yes (Hospitalization)
  Sender: FDA-Public Use
  Company Number: None

PATIENT
  Age: 67 Year
  Sex: Female
  Weight: 132.75 kg

DRUGS (9)
  1. NITROFURANTOIN [Suspect]
     Active Substance: NITROFURANTOIN
     Indication: Urinary tract infection
     Dosage: OTHER QUANTITY : 1 CAPSULE(S);?FREQUENCY : TWICE A DAY;?
     Route: 048
  2. PRAVASTATIN [Concomitant]
     Active Substance: PRAVASTATIN
  3. IRBESARTAN [Concomitant]
     Active Substance: IRBESARTAN
  4. MELOXICAM [Concomitant]
     Active Substance: MELOXICAM
  5. VITAMIN B12 [Concomitant]
     Active Substance: CYANOCOBALAMIN
  6. calcium 1200mg [Concomitant]
  7. vitamin D 2000iu [Concomitant]
  8. Mutlivitamin [Concomitant]
  9. ASPIRIN [Concomitant]
     Active Substance: ASPIRIN

REACTIONS (8)
  - Lung disorder [None]
  - Eye inflammation [None]
  - Eye pain [None]
  - Vision blurred [None]
  - Pyrexia [None]
  - Rash [None]
  - Urticaria [None]
  - Pneumonia [None]

NARRATIVE: CASE EVENT DATE: 20220609
